FAERS Safety Report 6330517-4 (Version None)
Quarter: 2009Q3

REPORT INFORMATION
  Report Type: 
  Country: None (occurrence: None)
  Receive Date: 20090827
  Receipt Date: 20090106
  Transmission Date: 20100115
  Serious: No
  Sender: FDA-Public Use
  Company Number: A0762528A

PATIENT
  Age: 61 Year
  Sex: Male

DRUGS (3)
  1. ZOVIRAX [Suspect]
     Indication: GENITAL HERPES
     Dosage: 200MG PER DAY
     Route: 048
     Dates: start: 19880101
  2. KLONOPIN [Concomitant]
  3. PROPRANOLOL [Concomitant]

REACTIONS (3)
  - ABDOMINAL DISTENSION [None]
  - HEADACHE [None]
  - ILL-DEFINED DISORDER [None]
